FAERS Safety Report 6498913-2 (Version None)
Quarter: 2009Q4

REPORT INFORMATION
  Report Type: 
  Country: None (occurrence: None)
  Receive Date: 20091215
  Receipt Date: 20091211
  Transmission Date: 20100525
  Serious: Yes (Death, Other)
  Sender: FDA-Public Use
  Company Number: US-JNJFOC-20091204008

PATIENT
  Age: 67 Year
  Sex: Male
  Weight: 118.39 kg

DRUGS (4)
  1. FENTANYL [Suspect]
     Indication: DRUG USE FOR UNKNOWN INDICATION
     Route: 065
  2. ACETAMINOPHEN [Concomitant]
     Route: 065
  3. OPIATES [Concomitant]
     Route: 065
  4. VENLAFAXINE [Concomitant]
     Route: 065

REACTIONS (4)
  - ARTERIOSCLEROSIS [None]
  - CARDIOMEGALY [None]
  - MALIGNANT NEOPLASM PROGRESSION [None]
  - QUADRIPLEGIA [None]
